FAERS Safety Report 15447992 (Version 1)
Quarter: 2018Q3

REPORT INFORMATION
  Report Type: Report from Study
  Country: None (occurrence: US)
  Receive Date: 20180928
  Receipt Date: 20180928
  Transmission Date: 20181010
  Serious: Yes (Other)
  Sender: FDA-Public Use
  Company Number: US-ABBVIE-18K-163-2497085-00

PATIENT
  Sex: Female

DRUGS (1)
  1. HUMIRA [Suspect]
     Active Substance: ADALIMUMAB
     Indication: PSORIASIS
     Route: 058
     Dates: end: 201804

REACTIONS (5)
  - Malaise [Unknown]
  - Appendicectomy [Unknown]
  - Psoriasis [Unknown]
  - Post procedural complication [Unknown]
  - Adverse reaction [Unknown]
